FAERS Safety Report 19299809 (Version 4)
Quarter: 2022Q2

REPORT INFORMATION
  Report Type: Report from Study
  Country: US (occurrence: US)
  Receive Date: 20210525
  Receipt Date: 20220404
  Transmission Date: 20220721
  Serious: Yes (Other)
  Sender: FDA-Public Use
  Company Number: US-NOVARTISTESTPH-NVSC2021US113911

PATIENT
  Age: 57 Year
  Sex: Female

DRUGS (1)
  1. ENTRESTO [Suspect]
     Active Substance: SACUBITRIL\VALSARTAN
     Indication: Cardiac failure
     Dosage: 50 MG, BID (2 TABS AM, 1 IN PM)
     Route: 048
     Dates: start: 20210405

REACTIONS (6)
  - Fluid retention [Recovering/Resolving]
  - Sleep apnoea syndrome [Recovered/Resolved]
  - Insomnia [Unknown]
  - Dizziness [Recovered/Resolved]
  - Dehydration [Recovered/Resolved]
  - Echocardiogram [Recovered/Resolved]

NARRATIVE: CASE EVENT DATE: 20210504
